FAERS Safety Report 23449542 (Version 1)
Quarter: 2024Q1

REPORT INFORMATION
  Report Type: Spontaneous
  Country: RU (occurrence: RU)
  Receive Date: 20240129
  Receipt Date: 20240129
  Transmission Date: 20240410
  Serious: Yes (Hospitalization)
  Sender: FDA-Public Use
  Company Number: RU-RZN-SPO/RUS/24/0001103

PATIENT
  Age: 17 Year
  Sex: Female

DRUGS (3)
  1. CETIRIZINE [Suspect]
     Active Substance: CETIRIZINE HYDROCHLORIDE
     Indication: Suicide attempt
     Dosage: 8 TABLETS
     Route: 048
     Dates: start: 20240110, end: 20240110
  2. FUROSEMIDE [Suspect]
     Active Substance: FUROSEMIDE
     Indication: Suicide attempt
     Dosage: 3 TABLETS
     Route: 048
     Dates: start: 20240110, end: 20240110
  3. SERTRALINE [Suspect]
     Active Substance: SERTRALINE HYDROCHLORIDE
     Indication: Suicide attempt
     Dosage: 14 TABLETS
     Route: 048
     Dates: start: 20240110, end: 20240110

REACTIONS (4)
  - Headache [Unknown]
  - Nausea [Unknown]
  - Dizziness [Unknown]
  - Asthenia [Unknown]

NARRATIVE: CASE EVENT DATE: 20240110
